FAERS Safety Report 14013384 (Version 2)
Quarter: 2018Q1

REPORT INFORMATION
  Report Type: Spontaneous
  Country: BR (occurrence: BR)
  Receive Date: 20170926
  Receipt Date: 20180130
  Transmission Date: 20180508
  Serious: Yes (Hospitalization)
  Sender: FDA-Public Use
  Company Number: BR-SA-2017SA175149

PATIENT
  Sex: Female

DRUGS (2)
  1. APIDRA [Suspect]
     Active Substance: INSULIN GLULISINE
     Dosage: FREQUENCY - 5 TIMES PER DAY
     Route: 058
     Dates: start: 2010
  2. AUTOPEN 24 [Suspect]
     Active Substance: DEVICE
     Dosage: 5 TIMES A DAY
     Dates: start: 2010

REACTIONS (4)
  - Diabetic metabolic decompensation [Unknown]
  - Product use issue [Unknown]
  - Exposure during pregnancy [Unknown]
  - Blood glucose abnormal [Unknown]
